FAERS Safety Report 21370838 (Version 4)
Quarter: 2024Q2

REPORT INFORMATION
  Report Type: Spontaneous
  Country: US (occurrence: US)
  Receive Date: 20220923
  Receipt Date: 20240503
  Transmission Date: 20240716
  Serious: No
  Sender: FDA-Public Use
  Company Number: US-PFIZER INC-PV202200068470

PATIENT
  Age: 69 Year
  Sex: Female
  Weight: 79.365 kg

DRUGS (6)
  1. XELJANZ XR [Suspect]
     Active Substance: TOFACITINIB CITRATE
     Indication: Rheumatoid arthritis
     Dosage: 11 MG
     Dates: start: 2021
  2. ACIDOPHILUS [Concomitant]
     Active Substance: LACTOBACILLUS ACIDOPHILUS
  3. ALBUTEROL [Concomitant]
     Active Substance: ALBUTEROL
  4. AMLODIPINE [Concomitant]
     Active Substance: AMLODIPINE BESYLATE
  5. HUMALOG [Concomitant]
     Active Substance: INSULIN LISPRO
  6. TOUJEO [Concomitant]
     Active Substance: INSULIN GLARGINE

REACTIONS (3)
  - Headache [Unknown]
  - Seasonal allergy [Unknown]
  - Asthma [Unknown]
